FAERS Safety Report 10191227 (Version 3)
Quarter: 2014Q2

REPORT INFORMATION
  Report Type: Report from Study
  Country: NL (occurrence: NL)
  Receive Date: 20140523
  Receipt Date: 20140603
  Transmission Date: 20141212
  Serious: Yes (Hospitalization, Disabling)
  Sender: FDA-Public Use
  Company Number: NL-SA-2014SA039710

PATIENT
  Age: 20 Year
  Sex: Female
  Weight: 48 kg

DRUGS (11)
  1. CLOFARABINE [Suspect]
     Indication: ACUTE LYMPHOCYTIC LEUKAEMIA
     Route: 042
     Dates: start: 20140215
  2. PEGASPARGASE [Suspect]
     Indication: ACUTE LYMPHOCYTIC LEUKAEMIA
     Route: 042
     Dates: start: 20140223
  3. VINCRISTINE [Suspect]
     Indication: ACUTE LYMPHOCYTIC LEUKAEMIA
     Route: 042
     Dates: start: 20140223
  4. DAUNORUBICIN [Suspect]
     Indication: ACUTE LYMPHOCYTIC LEUKAEMIA
     Route: 042
     Dates: start: 20140302
  5. PREDNISOLONE [Suspect]
     Indication: ACUTE LYMPHOCYTIC LEUKAEMIA
     Route: 048
     Dates: start: 20140215
  6. DEXAMETHASONE [Suspect]
     Indication: ACUTE LYMPHOCYTIC LEUKAEMIA
     Route: 037
     Dates: start: 20140224
  7. METHOTREXATE [Suspect]
     Indication: ACUTE LYMPHOCYTIC LEUKAEMIA
     Route: 037
     Dates: start: 20140224
  8. FLUCONAZOLE [Concomitant]
     Route: 048
     Dates: start: 20140213
  9. COLISTIN [Concomitant]
     Route: 048
     Dates: start: 20140213
  10. VALACICLOVIR [Concomitant]
     Indication: PROPHYLAXIS
     Route: 048
     Dates: start: 20140213
  11. CO-TRIMOXAZOLE [Concomitant]
     Indication: PROPHYLAXIS
     Route: 048

REACTIONS (2)
  - Hepatotoxicity [Recovered/Resolved]
  - Peripheral motor neuropathy [Not Recovered/Not Resolved]
